FAERS Safety Report 8493809-9 (Version None)
Quarter: 2012Q3

REPORT INFORMATION
  Report Type: 
  Country: None (occurrence: None)
  Receive Date: 20120706
  Receipt Date: 20120430
  Transmission Date: 20120928
  Serious: Yes (Death, Hospitalization, Other)
  Sender: FDA-Public Use
  Company Number: US-BAXTER-2012BAX001515

PATIENT
  Sex: Male
  Weight: 81 kg

DRUGS (15)
  1. DIANEAL LOW CALCIUM W/ DEXTROSE 1.5% [Suspect]
     Indication: PERITONEAL DIALYSIS
     Route: 033
     Dates: end: 20120329
  2. VENOFER [Concomitant]
     Route: 042
  3. PANTOPRAZOLE [Concomitant]
     Route: 048
  4. ZANTAC [Concomitant]
     Route: 048
     Dates: start: 20090515
  5. EXTRANEAL [Suspect]
     Indication: PERITONEAL DIALYSIS
     Route: 033
     Dates: end: 20120329
  6. WARFARIN SODIUM [Concomitant]
     Route: 048
  7. LANTUS [Concomitant]
     Dosage: 40 UNITS
     Route: 058
     Dates: start: 20120213
  8. DIANEAL [Suspect]
     Indication: PERITONEAL DIALYSIS
     Route: 033
     Dates: end: 20120329
  9. NEPHROCAPS [Concomitant]
     Indication: VITAMIN SUPPLEMENTATION
     Dosage: I PILL
     Route: 048
     Dates: start: 20090814
  10. EPOGEN [Concomitant]
     Route: 058
  11. NEUTRA PHOS [Concomitant]
     Route: 048
  12. AMIODARONE HCL [Concomitant]
     Route: 048
     Dates: start: 20120113
  13. POTASSIUM CHLORIDE [Concomitant]
     Route: 048
     Dates: start: 20120213
  14. PEPCID [Concomitant]
     Route: 048
     Dates: start: 20100217
  15. COREG [Concomitant]
     Route: 048
     Dates: start: 20100527

REACTIONS (3)
  - CARDIAC ARREST [None]
  - HYPOTENSION [None]
  - CARDIAC FAILURE [None]
